FAERS Safety Report 8188513 (Version 3)
Quarter: 2015Q1

REPORT INFORMATION
  Report Type: Spontaneous
  Country: JP (occurrence: JP)
  Receive Date: 20111019
  Receipt Date: 20150324
  Transmission Date: 20150721
  Serious: Yes (Death, Other)
  Sender: FDA-Public Use
  Company Number: JP-PFIZER INC-2011245370

PATIENT
  Age: 63 Year
  Sex: Male

DRUGS (2)
  1. SUTENT [Suspect]
     Active Substance: SUNITINIB MALATE
     Indication: RENAL CELL CARCINOMA
     Dosage: 50 MG, 1X/DAY
     Route: 048
     Dates: start: 20111006, end: 20111027
  2. SUTENT [Suspect]
     Active Substance: SUNITINIB MALATE
     Dosage: 37.5 MG, UNK
     Dates: end: 20120305

REACTIONS (5)
  - Disease progression [Fatal]
  - Tumour lysis syndrome [Recovering/Resolving]
  - Blood lactate dehydrogenase increased [Not Recovered/Not Resolved]
  - Renal cell carcinoma [Fatal]
  - Renal impairment [Recovering/Resolving]

NARRATIVE: CASE EVENT DATE: 20111011
